FAERS Safety Report 14073135 (Version 1)
Quarter: 2017Q4

REPORT INFORMATION
  Report Type: Spontaneous
  Country: US (occurrence: US)
  Receive Date: 20171010
  Receipt Date: 20171010
  Transmission Date: 20180321
  Serious: No
  Sender: FDA-Public Use
  Company Number: US-JNJFOC-20170720327

PATIENT
  Age: 42 Year
  Sex: Male

DRUGS (2)
  1. TYLENOL REGULAR STRENGTH [Suspect]
     Active Substance: ACETAMINOPHEN
     Indication: PRODUCT USED FOR UNKNOWN INDICATION
     Dosage: POSSIBLY 15 LIQUID GEL ONCE (BUNCH OF LIQUID GEL ONCE)
     Route: 065
     Dates: start: 20170724
  2. TYLENOL REGULAR STRENGTH [Suspect]
     Active Substance: ACETAMINOPHEN
     Indication: HEADACHE
     Dosage: POSSIBLY 15 LIQUID GEL ONCE (BUNCH OF LIQUID GEL ONCE)
     Route: 065
     Dates: start: 20170724

REACTIONS (1)
  - Overdose [Unknown]

NARRATIVE: CASE EVENT DATE: 20170724
